FAERS Safety Report 10501449 (Version 2)
Quarter: 2014Q4

REPORT INFORMATION
  Report Type: Spontaneous
  Country: FR (occurrence: FR)
  Receive Date: 20141007
  Receipt Date: 20141007
  Transmission Date: 20150528
  Serious: Yes (Other)
  Sender: FDA-Public Use
  Company Number: PHHY2014FR095859

PATIENT
  Age: 94 Year
  Sex: Female

DRUGS (1)
  1. LETROZOLE SANDOZ [Suspect]
     Active Substance: LETROZOLE
     Indication: BREAST CANCER RECURRENT
     Dosage: 2.5 MG, QD
     Route: 048
     Dates: start: 201402

REACTIONS (9)
  - Joint swelling [Recovering/Resolving]
  - Cataract [Recovering/Resolving]
  - Visual impairment [Recovering/Resolving]
  - Fall [Recovering/Resolving]
  - Urinary incontinence [Recovering/Resolving]
  - Concomitant disease aggravated [Recovering/Resolving]
  - Alopecia [Recovering/Resolving]
  - Dyspnoea [Recovering/Resolving]
  - Weight decreased [Recovering/Resolving]

NARRATIVE: CASE EVENT DATE: 20140727
